FAERS Safety Report 9407397 (Version 1)
Quarter: 2013Q3

REPORT INFORMATION
  Report Type: Report from Study
  Country: US (occurrence: US)
  Receive Date: 20130718
  Receipt Date: 20130718
  Transmission Date: 20140515
  Serious: Yes (Other)
  Sender: FDA-Public Use
  Company Number: US-ACTELION-A-NJ2013-85845

PATIENT
  Age: 49 Year
  Sex: Female

DRUGS (2)
  1. TRACLEER [Suspect]
     Indication: COR PULMONALE CHRONIC
     Route: 048
  2. LETAIRIS [Concomitant]

REACTIONS (1)
  - Dialysis [Unknown]
